FAERS Safety Report 10737913 (Version 1)
Quarter: 2015Q1

REPORT INFORMATION
  Report Type: Spontaneous
  Country: US (occurrence: US)
  Receive Date: 20150126
  Receipt Date: 20150126
  Transmission Date: 20150721
  Serious: No
  Sender: FDA-Public Use
  Company Number: US-SA-2014SA104471

PATIENT
  Age: 65 Year
  Sex: Male

DRUGS (8)
  1. PACERONE [Suspect]
     Active Substance: AMIODARONE HYDROCHLORIDE
     Indication: ARRHYTHMIA
     Route: 048
     Dates: start: 201311
  2. PRADAXA [Concomitant]
     Active Substance: DABIGATRAN ETEXILATE MESYLATE
  3. LASIX [Suspect]
     Active Substance: FUROSEMIDE
     Indication: FLUID RETENTION
     Route: 065
  4. SULFASALAZINE. [Concomitant]
     Active Substance: SULFASALAZINE
  5. DEXILANT [Concomitant]
     Active Substance: DEXLANSOPRAZOLE
  6. CARVEDILOL. [Concomitant]
     Active Substance: CARVEDILOL
  7. AMLODIPINE/BENAZEPRIL [Concomitant]
  8. LEVOTHYROXINE SODIUM. [Concomitant]
     Active Substance: LEVOTHYROXINE SODIUM

REACTIONS (2)
  - Constipation [Not Recovered/Not Resolved]
  - Faeces hard [Not Recovered/Not Resolved]

NARRATIVE: CASE EVENT DATE: 201311
